FAERS Safety Report 9783988 (Version 1)
Quarter: 2013Q4

REPORT INFORMATION
  Report Type: Spontaneous
  Country: US (occurrence: US)
  Receive Date: 20131226
  Receipt Date: 20131226
  Transmission Date: 20140711
  Serious: Yes (Hospitalization)
  Sender: FDA-Public Use
  Company Number: US-PFIZER INC-2013364311

PATIENT
  Age: 41 Year
  Sex: Female
  Weight: 38.55 kg

DRUGS (3)
  1. SUTENT [Suspect]
     Indication: RENAL CELL CARCINOMA
     Dosage: 50 MG, 1X/DAY
     Route: 048
     Dates: start: 20131016
  2. SANDOSTATIN [Suspect]
     Dosage: UNK
     Dates: end: 2013
  3. GABAPENTIN [Concomitant]
     Indication: SCIATICA
     Dosage: 300 MG, UNK

REACTIONS (4)
  - Cholecystitis infective [Recovered/Resolved]
  - Cholecystitis [Recovered/Resolved]
  - Dehydration [Unknown]
  - Nausea [Recovered/Resolved]
